FAERS Safety Report 19233414 (Version 3)
Quarter: 2021Q3

REPORT INFORMATION
  Report Type: Spontaneous
  Country: US (occurrence: US)
  Receive Date: 20210507
  Receipt Date: 20210902
  Transmission Date: 20211014
  Serious: Yes (Other)
  Sender: FDA-Public Use
  Company Number: US-PFIZER INC-2021269697

PATIENT
  Age: 83 Year
  Sex: Male

DRUGS (1)
  1. VYNDAMAX [Suspect]
     Active Substance: TAFAMIDIS
     Indication: CARDIAC AMYLOIDOSIS
     Dosage: 61 MG
     Dates: start: 20210108

REACTIONS (14)
  - Platelet count decreased [Unknown]
  - Depression [Unknown]
  - Malaise [Unknown]
  - Hypoacusis [Unknown]
  - Skin lesion [Unknown]
  - Blood pressure increased [Unknown]
  - Dizziness [Unknown]
  - Blood bilirubin increased [Unknown]
  - Brain natriuretic peptide increased [Unknown]
  - Vertigo [Unknown]
  - Blood glucose increased [Unknown]
  - Ejection fraction decreased [Unknown]
  - Weight increased [Unknown]
  - Erectile dysfunction [Unknown]
